FAERS Safety Report 19693321 (Version 1)
Quarter: 2021Q3

REPORT INFORMATION
  Report Type: Spontaneous
  Country: DE (occurrence: DE)
  Receive Date: 20210813
  Receipt Date: 20210813
  Transmission Date: 20211014
  Serious: Yes (Hospitalization)
  Sender: FDA-Public Use
  Company Number: DE-EXELIXIS-CABO-21043000

PATIENT
  Age: 70 Year
  Sex: Male

DRUGS (11)
  1. CABOMETYX [Suspect]
     Active Substance: CABOZANTINIB S-MALATE
     Indication: PRODUCT USED FOR UNKNOWN INDICATION
     Dosage: UNK, ACCORDING TO SCHEME TABLETS
     Route: 048
  2. DENOSUMAB [Suspect]
     Active Substance: DENOSUMAB
     Indication: PRODUCT USED FOR UNKNOWN INDICATION
     Dosage: UNK,  ACCORDING TO SCHEME INJECTION/INFUSION SOLUTION
     Route: 058
  3. CLOPIDOGREL [Concomitant]
     Active Substance: CLOPIDOGREL BISULFATE
     Dosage: 75 MG, 1?0?0?0, TABLET
     Route: 048
  4. DALTEPARIN [Concomitant]
     Active Substance: DALTEPARIN
     Dosage: 0.2 ML, 0?0?1?0, INJECTION/INFUSION SOLUTION
     Route: 058
  5. LERCANIDIPINE [Concomitant]
     Active Substance: LERCANIDIPINE
     Dosage: 10 MG, 1?0?0?0, TABLET
     Route: 048
  6. DULOXETINE. [Concomitant]
     Active Substance: DULOXETINE
     Dosage: 30 MG, 1?0?0?0, TABLET
     Route: 048
  7. CARVEDILOL. [Concomitant]
     Active Substance: CARVEDILOL
     Dosage: 12.5 MG, 1?0?1?0, TABLET
     Route: 048
  8. CYANOCOBALAMIN. [Concomitant]
     Active Substance: CYANOCOBALAMIN
     Dosage: 1000 ?G, 1?0?0?0, TABLET
     Route: 048
  9. FENTANYL. [Concomitant]
     Active Substance: FENTANYL
     Dosage: 2.1 MG, EVERY 3 DAYS TRANSDERMAL PATCH
     Route: 062
  10. LATANOPROST. [Concomitant]
     Active Substance: LATANOPROST
     Dosage: 0.2 ML, IN THE EVENING IN THE EYE DROPS
     Route: 031
  11. FOLSAEURE [Concomitant]
     Active Substance: FOLIC ACID
     Dosage: 5 MG, 1?0?0?0, TABLET
     Route: 048

REACTIONS (3)
  - Diarrhoea [Recovering/Resolving]
  - Hypercalcaemia [Recovering/Resolving]
  - Paraesthesia [Recovering/Resolving]
